FAERS Safety Report 8008527-0 (Version None)
Quarter: 2011Q4

REPORT INFORMATION
  Report Type: 
  Country: None (occurrence: None)
  Receive Date: 20111227
  Receipt Date: 20111215
  Transmission Date: 20120403
  Serious: Yes (Hospitalization)
  Sender: FDA-Public Use
  Company Number: FR-ASTRAZENECA-2011SE76713

PATIENT
  Age: 81 Year
  Sex: Female

DRUGS (8)
  1. PREVISCAN [Concomitant]
     Indication: ATRIAL FIBRILLATION
     Route: 048
  2. LASIX [Concomitant]
     Indication: HYPERTENSION
     Route: 048
     Dates: end: 20111120
  3. TENORMIN [Suspect]
     Indication: HYPERTENSION
     Route: 048
     Dates: end: 20111120
  4. PERINDOPRIL ERBUMINE [Concomitant]
     Indication: HYPERTENSION
     Route: 048
  5. TANAKAN [Concomitant]
     Route: 048
  6. ARIMIDEX [Concomitant]
     Indication: BREAST CANCER
     Route: 048
     Dates: start: 20100101
  7. ARICEPT [Concomitant]
     Indication: DEMENTIA ALZHEIMER'S TYPE
     Route: 048
  8. ALDACTONE [Concomitant]
     Indication: HYPERTENSION
     Route: 048

REACTIONS (3)
  - BRADYCARDIA [None]
  - MALAISE [None]
  - HYPOTENSION [None]
